FAERS Safety Report 25225520 (Version 4)
Quarter: 2025Q2

REPORT INFORMATION
  Report Type: Report from Study
  Country: US (occurrence: US)
  Receive Date: 20250422
  Receipt Date: 20250527
  Transmission Date: 20250716
  Serious: No
  Sender: PFIZER
  Company Number: US-PFIZER INC-202500084142

PATIENT
  Age: 77 Year
  Sex: Male

DRUGS (16)
  1. INLYTA [Suspect]
     Active Substance: AXITINIB
     Dosage: 5MG PO(ORAL) Q(EVERY) 12 HOURS
     Route: 048
     Dates: start: 20250305, end: 20250415
  2. LEVOTHYROXINE [Concomitant]
     Active Substance: LEVOTHYROXINE
  3. ATORVASTATIN [Concomitant]
     Active Substance: ATORVASTATIN
  4. CARVEDILOL [Concomitant]
     Active Substance: CARVEDILOL
  5. VITAMIN B12 [Concomitant]
     Active Substance: CYANOCOBALAMIN
  6. MINERALS\VITAMINS [Concomitant]
     Active Substance: MINERALS\VITAMINS
  7. FENOFIBRATE [Concomitant]
     Active Substance: FENOFIBRATE
  8. FISH OIL [Concomitant]
     Active Substance: FISH OIL
  9. NOVOLIN N [Concomitant]
     Active Substance: INSULIN HUMAN
  10. NOVOLIN U [INSULIN HUMAN ZINC] [Concomitant]
  11. MELATONIN [Concomitant]
     Active Substance: MELATONIN
  12. PREGABALIN [Concomitant]
     Active Substance: PREGABALIN
  13. TRULICITY [Concomitant]
     Active Substance: DULAGLUTIDE
  14. TRULICITY [Concomitant]
     Active Substance: DULAGLUTIDE
  15. VITAMIN B6 [Concomitant]
     Active Substance: PYRIDOXINE HYDROCHLORIDE
  16. METHADONE [Concomitant]
     Active Substance: METHADONE HYDROCHLORIDE

REACTIONS (6)
  - Dysphonia [Recovering/Resolving]
  - Weight decreased [Recovering/Resolving]
  - Diplopia [Recovering/Resolving]
  - Fatigue [Recovering/Resolving]
  - Back disorder [Recovering/Resolving]
  - Muscular weakness [Not Recovered/Not Resolved]

NARRATIVE: CASE EVENT DATE: 20250331
